FAERS Safety Report 5227724-0 (Version None)
Quarter: 2007Q1

REPORT INFORMATION
  Report Type: 
  Country: None (occurrence: None)
  Receive Date: 20070202
  Receipt Date: 20070125
  Transmission Date: 20070707
  Serious: Yes (Hospitalization)
  Sender: FDA-Public Use
  Company Number: JP-PFIZER INC-2007007555

PATIENT
  Sex: Male

DRUGS (2)
  1. VIRACEPT [Suspect]
     Indication: HIV INFECTION
     Route: 048
  2. COMBIVIR [Suspect]
     Indication: HIV INFECTION
     Dosage: TEXT:2 DF-FREQ:BID: EVERYDAY
     Route: 048
     Dates: start: 20050223, end: 20050329

REACTIONS (2)
  - IMMUNE RECONSTITUTION SYNDROME [None]
  - PANCYTOPENIA [None]
